FAERS Safety Report 4939184-5 (Version None)
Quarter: 2006Q1

REPORT INFORMATION
  Report Type: 
  Country: None (occurrence: None)
  Receive Date: 20060309
  Receipt Date: 20060309
  Transmission Date: 20060701
  Serious: Yes (Life-Threatening, Hospitalization)
  Sender: FDA-Public Use
  Company Number: None

PATIENT
  Age: 6 Day
  Sex: Female

DRUGS (1)
  1. NEUPOGEN [Suspect]
     Indication: RED BLOOD CELL COUNT DECREASED
     Dosage: 5 MCG  DAILY X 3 DAYS  IV
     Route: 042
     Dates: start: 20060226, end: 20060226

REACTIONS (8)
  - ADVERSE DRUG REACTION [None]
  - APNOEA [None]
  - BRADYCARDIA [None]
  - MEDICATION ERROR [None]
  - MUSCLE TWITCHING [None]
  - RASH [None]
  - TREMOR [None]
  - WRONG TECHNIQUE IN DRUG USAGE PROCESS [None]
